FAERS Safety Report 16539390 (Version 1)
Quarter: 2019Q3

REPORT INFORMATION
  Report Type: Spontaneous
  Country: US (occurrence: US)
  Receive Date: 20190708
  Receipt Date: 20190708
  Transmission Date: 20191004
  Serious: Yes (Hospitalization)
  Sender: FDA-Public Use
  Company Number: US-TARO PHARMACEUTICALS USA.,INC-2019SUN00303

PATIENT
  Age: 63 Year
  Sex: Female

DRUGS (2)
  1. AMIODARONE [Suspect]
     Active Substance: AMIODARONE
     Indication: ATRIAL FIBRILLATION
     Dosage: UNK
     Route: 065
  2. WARFARIN [Suspect]
     Active Substance: WARFARIN
     Indication: CEREBROVASCULAR ACCIDENT PROPHYLAXIS
     Dosage: UNK
     Route: 065

REACTIONS (11)
  - Bradycardia [Unknown]
  - Off label use [Unknown]
  - Hypoxia [Unknown]
  - Torsade de pointes [Recovered/Resolved]
  - Ventricular tachycardia [Unknown]
  - Cardiac arrest [Unknown]
  - Haematoma [Recovered/Resolved]
  - Apnoea [Unknown]
  - Myxoedema coma [Recovered/Resolved]
  - Electrocardiogram QT prolonged [Recovered/Resolved]
  - Coagulopathy [Unknown]
